FAERS Safety Report 25216184 (Version 1)
Quarter: 2025Q2

REPORT INFORMATION
  Report Type: Spontaneous
  Country: US (occurrence: US)
  Receive Date: 20250418
  Receipt Date: 20250418
  Transmission Date: 20250717
  Serious: Yes (Other)
  Sender: HUMACYTE
  Company Number: US-HUMACYTE GLOBAL, INC.-US-2025-ATEV-00002

PATIENT

DRUGS (1)
  1. SYMVESS [Suspect]
     Active Substance: ACELLULAR TISSUE ENGINEERED VESSEL
     Indication: Product used for unknown indication
     Route: 065

REACTIONS (1)
  - Stenosis [Unknown]
